FAERS Safety Report 7896139-9 (Version None)
Quarter: 2011Q4

REPORT INFORMATION
  Report Type: 
  Country: None (occurrence: None)
  Receive Date: 20111106
  Receipt Date: 20110906
  Transmission Date: 20120403
  Serious: No
  Sender: FDA-Public Use
  Company Number: US-AMGEN-USASP2011045663

PATIENT
  Age: 51 Year
  Sex: Male

DRUGS (5)
  1. SERZONE [Concomitant]
     Indication: PRODUCT USED FOR UNKNOWN INDICATION
     Dosage: 400 MG, 1 IN 1 DAY
  2. FINASTERIDE [Concomitant]
     Indication: PRODUCT USED FOR UNKNOWN INDICATION
     Dosage: 1 MG, UNK
  3. ATORVASTATIN [Concomitant]
     Indication: PRODUCT USED FOR UNKNOWN INDICATION
     Dosage: 10 MG, 1/2 TAB
  4. ENBREL [Suspect]
     Indication: PSORIASIS
     Dosage: UNK
  5. HUMIRA [Concomitant]
     Indication: PSORIASIS
     Dosage: 40 MG, 1 IN 2 WEEKS
     Route: 065
     Dates: start: 20110805

REACTIONS (1)
  - RASH [None]
